FAERS Safety Report 18887225 (Version 2)
Quarter: 2021Q1

REPORT INFORMATION
  Report Type: Spontaneous
  Country: US (occurrence: US)
  Receive Date: 20210212
  Receipt Date: 20210331
  Transmission Date: 20210420
  Serious: Yes (Other)
  Sender: FDA-Public Use
  Company Number: US-GLAXOSMITHKLINE-US2021GSK039657

PATIENT
  Sex: Male

DRUGS (4)
  1. RANITIDINE. [Suspect]
     Active Substance: RANITIDINE
     Indication: PRURITUS
     Dosage: 150 MG, QD
     Route: 065
     Dates: start: 201001, end: 201911
  2. RANITIDINE. [Suspect]
     Active Substance: RANITIDINE
     Indication: PRURITUS
     Dosage: 150 MG, QD
     Route: 065
     Dates: start: 201001, end: 201911
  3. ZANTAC [Suspect]
     Active Substance: RANITIDINE HYDROCHLORIDE
     Indication: PRURITUS
     Dosage: 150 MG PRESCRIPTION
     Route: 065
     Dates: start: 201001, end: 201911
  4. ZANTAC [Suspect]
     Active Substance: RANITIDINE HYDROCHLORIDE
     Indication: PRURITUS
     Dosage: 150 MG PRESCRIPTION
     Route: 065
     Dates: start: 201001, end: 201911

REACTIONS (2)
  - Prostate cancer [Unknown]
  - Lung neoplasm malignant [Unknown]
